FAERS Safety Report 8789276 (Version 1)
Quarter: 2012Q4

REPORT INFORMATION
  Report Type: Spontaneous
  Country: GB (occurrence: None)
  Receive Date: 20120905
  Receipt Date: 20120905
  Transmission Date: 20130627
  Serious: Yes (Other)
  Sender: FDA-Public Use
  Company Number: FK201202450

PATIENT
  Sex: Male

DRUGS (3)
  1. METHYLPREDNISOLONE [Suspect]
     Indication: B-CELL SMALL LYMPHOCYTIC LYMPHOMA
  2. ALEMTUZUMAB [Suspect]
     Indication: B-CELL SMALL LYMPHOCYTIC LYMPHOMA
  3. PREDNISOLONE (PREDNISOLONE) [Concomitant]

REACTIONS (8)
  - Hepatitis B [None]
  - Epstein-Barr virus test positive [None]
  - Hepatitis acute [None]
  - Chronic lymphocytic leukaemia recurrent [None]
  - Ascites [None]
  - Portal hypertension [None]
  - Liver disorder [None]
  - Pneumonia [None]
